FAERS Safety Report 18059232 (Version 1)
Quarter: 2020Q3

REPORT INFORMATION
  Report Type: Spontaneous
  Country: BA (occurrence: BA)
  Receive Date: 20200723
  Receipt Date: 20200723
  Transmission Date: 20201103
  Serious: Yes (Other)
  Sender: FDA-Public Use
  Company Number: BA-PFIZER INC-2020280087

PATIENT
  Age: 64 Year
  Sex: Male

DRUGS (4)
  1. GLUFORMIN [Suspect]
     Active Substance: METFORMIN HYDROCHLORIDE
     Dosage: 850 MG, 2X/DAY
  2. NORVASC [Suspect]
     Active Substance: AMLODIPINE BESYLATE
     Dosage: 10 MG, 1X/DAY, IN THE EVENING
  3. ANDOL [Suspect]
     Active Substance: ASPIRIN
     Dosage: 100 MG, 1X/DAY, WITH LUNCH
  4. LOPRIL H [Suspect]
     Active Substance: HYDROCHLOROTHIAZIDE\LISINOPRIL
     Dosage: 20 MG, 1X/DAY, IN THE MORNING

REACTIONS (5)
  - Arteriosclerosis [Unknown]
  - Low density lipoprotein increased [Unknown]
  - Peripheral pulse decreased [Unknown]
  - Blood cholesterol increased [Unknown]
  - Pain in extremity [Unknown]
